FAERS Safety Report 6424373-3 (Version None)
Quarter: 2009Q4

REPORT INFORMATION
  Report Type: 
  Country: None (occurrence: None)
  Receive Date: 20091103
  Receipt Date: 20091022
  Transmission Date: 20100525
  Serious: No
  Sender: FDA-Public Use
  Company Number: JP-JNJFOC-20091007374

PATIENT

DRUGS (3)
  1. DUROTEP MT [Suspect]
     Dosage: 25 MCG/HR WAS USED CUT IN HALF
     Route: 062
  2. DUROTEP MT [Suspect]
     Route: 062
  3. DUROTEP MT [Suspect]
     Indication: CANCER PAIN
     Route: 062

REACTIONS (2)
  - GENERAL PHYSICAL CONDITION ABNORMAL [None]
  - WRONG TECHNIQUE IN DRUG USAGE PROCESS [None]
